FAERS Safety Report 25554167 (Version 2)
Quarter: 2025Q3

REPORT INFORMATION
  Report Type: Spontaneous
  Country: EU (occurrence: EU)
  Receive Date: 20250715
  Receipt Date: 20250718
  Transmission Date: 20251020
  Serious: Yes (Other)
  Sender: NOVARTIS
  Company Number: EU-002147023-NVSC2025DK108844

PATIENT
  Sex: Female

DRUGS (3)
  1. SANDOSTATIN LAR DEPOT [Suspect]
     Active Substance: OCTREOTIDE ACETATE
     Indication: Acromegaly
     Route: 065
     Dates: start: 202406
  2. SANDOSTATIN LAR DEPOT [Suspect]
     Active Substance: OCTREOTIDE ACETATE
  3. SANDOSTATIN LAR DEPOT [Suspect]
     Active Substance: OCTREOTIDE ACETATE

REACTIONS (9)
  - Neoplasm [Unknown]
  - Heart rate increased [Unknown]
  - Hyperhidrosis [Unknown]
  - Blood glucose decreased [Not Recovered/Not Resolved]
  - Carbohydrate intolerance [Not Recovered/Not Resolved]
  - Steatorrhoea [Unknown]
  - Headache [Unknown]
  - Dizziness [Unknown]
  - Eye movement disorder [Recovering/Resolving]
